FAERS Safety Report 10499527 (Version 1)
Quarter: 2014Q4

REPORT INFORMATION
  Report Type: Spontaneous
  Country: US (occurrence: US)
  Receive Date: 20141006
  Receipt Date: 20141006
  Transmission Date: 20150528
  Serious: No
  Sender: FDA-Public Use
  Company Number: US-AMGEN INC.-USASP2014036758

PATIENT
  Age: 65 Year
  Sex: Female

DRUGS (9)
  1. PROLIA [Suspect]
     Active Substance: DENOSUMAB
     Indication: OSTEOPOROSIS POSTMENOPAUSAL
     Dosage: UNK
     Route: 065
     Dates: start: 201403
  2. VITAMIN D                          /00107901/ [Concomitant]
     Active Substance: ERGOCALCIFEROL
  3. LEXAPRO                            /01588501/ [Concomitant]
  4. ZOLPIDEM                           /00914902/ [Concomitant]
     Active Substance: ZOLPIDEM\ZOLPIDEM TARTRATE
  5. ATORVASTATIN [Concomitant]
     Active Substance: ATORVASTATIN
  6. LEVOTHYROXINE [Concomitant]
     Active Substance: LEVOTHYROXINE
  7. METAXALONE. [Concomitant]
     Active Substance: METAXALONE
  8. CALCIUM [Concomitant]
     Active Substance: CALCIUM
  9. CLONAZEPAM. [Concomitant]
     Active Substance: CLONAZEPAM

REACTIONS (1)
  - Inappropriate schedule of drug administration [Unknown]
